FAERS Safety Report 8267168-0 (Version None)
Quarter: 2012Q2

REPORT INFORMATION
  Report Type: 
  Country: None (occurrence: None)
  Receive Date: 20120404
  Receipt Date: 20120323
  Transmission Date: 20120825
  Serious: Yes (Other)
  Sender: FDA-Public Use
  Company Number: AUR-APL-2012-01638

PATIENT
  Age: 62 Year
  Sex: Male

DRUGS (2)
  1. METFORMIN HCL [Suspect]
     Indication: DIABETES MELLITUS
     Dosage: ORAL
     Route: 048
     Dates: start: 20120201, end: 20120301
  2. AMARYL [Concomitant]

REACTIONS (5)
  - NAUSEA [None]
  - VOMITING [None]
  - DIABETES MELLITUS [None]
  - CONDITION AGGRAVATED [None]
  - PRODUCT ODOUR ABNORMAL [None]
